FAERS Safety Report 4363646-5 (Version None)
Quarter: 2004Q2

REPORT INFORMATION
  Report Type: 
  Country: None (occurrence: None)
  Receive Date: 20040524
  Receipt Date: 20040524
  Transmission Date: 20050107
  Serious: Yes (Disabling)
  Sender: FDA-Public Use
  Company Number: None

PATIENT
  Age: 55 Year
  Sex: Female
  Weight: 80.7403 kg

DRUGS (1)
  1. ZICAM COLD REMEDY HOMEOPATHIC-MATRIXX INITIATIVES- [Suspect]
     Indication: NASOPHARYNGITIS
     Dosage: 1X EA. EVERY 4 HO NASAL
     Route: 045
     Dates: start: 20040215, end: 20040217

REACTIONS (1)
  - PAROSMIA [None]
